FAERS Safety Report 8833934 (Version 1)
Quarter: 2012Q4

REPORT INFORMATION
  Report Type: Spontaneous
  Country: JO (occurrence: None)
  Receive Date: 20121005
  Receipt Date: 20121005
  Transmission Date: 20130627
  Serious: Yes (Death)
  Sender: FDA-Public Use
  Company Number: DSA_59948_2012

PATIENT
  Age: 50 Year
  Sex: Male

DRUGS (5)
  1. 5-FU [Suspect]
     Indication: COLORECTAL CANCER METASTATIC
     Route: 042
     Dates: start: 20110122
  2. ELOXATIN [Suspect]
     Indication: COLORECTAL CANCER METASTATIC
     Dosage: DF, every cycle Intravenous
     Dates: start: 20110122
  3. LEUCOVORIN [Suspect]
     Indication: COLORECTAL CANCER METASTATIC
     Route: 042
     Dates: start: 20110122
  4. PANADOL [Concomitant]
  5. CELEBREX [Concomitant]

REACTIONS (5)
  - Pyrexia [None]
  - Chills [None]
  - Chills [None]
  - Pelvic pain [None]
  - General physical condition abnormal [None]
